FAERS Safety Report 14374596 (Version 1)
Quarter: 2018Q1

REPORT INFORMATION
  Report Type: Spontaneous
  Country: US (occurrence: US)
  Receive Date: 20180111
  Receipt Date: 20180111
  Transmission Date: 20180509
  Serious: Yes (Death, Other)
  Sender: FDA-Public Use
  Company Number: US-ALKEM LABORATORIES LIMITED-US-ALKEM-2017-01849

PATIENT
  Age: 61 Year
  Sex: Male

DRUGS (1)
  1. MYCOPHENOLATE MOFETIL. [Suspect]
     Active Substance: MYCOPHENOLATE MOFETIL
     Indication: PRODUCT USED FOR UNKNOWN INDICATION
     Dosage: UNK
     Route: 065

REACTIONS (11)
  - Gastrointestinal haemorrhage [Unknown]
  - Urinary tract infection [Unknown]
  - Hepatic cirrhosis [Unknown]
  - Aspergillus infection [Fatal]
  - Complications of transplanted kidney [Unknown]
  - Renal tubular necrosis [Unknown]
  - Hepatitis C [Unknown]
  - Bacteraemia [Unknown]
  - Cardiac arrest [Unknown]
  - Transplant rejection [Unknown]
  - Enterococcal bacteraemia [Unknown]
